FAERS Safety Report 4549385-6 (Version None)
Quarter: 2005Q1

REPORT INFORMATION
  Report Type: 
  Country: None (occurrence: None)
  Receive Date: 20050106
  Receipt Date: 20041229
  Transmission Date: 20050727
  Serious: Yes (Other)
  Sender: FDA-Public Use
  Company Number: 7587

PATIENT
  Age: 47 Year
  Sex: Female

DRUGS (5)
  1. SEPTOCAINE [Suspect]
     Indication: LOCAL ANAESTHESIA
     Dosage: 1 CARPULE INJECTED
  2. EPINEPHRINE [Suspect]
     Dosage: MANDIBULAR BLOCK
  3. GLUCOPHAGE [Concomitant]
  4. SINGULAIR [Concomitant]
  5. THEOLAIR [Concomitant]

REACTIONS (2)
  - ANAESTHETIC COMPLICATION [None]
  - PARAESTHESIA [None]
